FAERS Safety Report 24325174 (Version 1)
Quarter: 2024Q3

REPORT INFORMATION
  Report Type: Report from Study
  Country: CN (occurrence: CN)
  Receive Date: 20240916
  Receipt Date: 20240916
  Transmission Date: 20241016
  Serious: Yes (Death)
  Sender: ROCHE
  Company Number: CN-ROCHE-10000075589

PATIENT
  Age: 49 Year
  Sex: Female

DRUGS (1)
  1. COLUMVI [Suspect]
     Active Substance: GLOFITAMAB-GXBM
     Indication: Diffuse large B-cell lymphoma
     Route: 042
     Dates: start: 20240722

REACTIONS (2)
  - Haemorrhage intracranial [Fatal]
  - Condition aggravated [Unknown]

NARRATIVE: CASE EVENT DATE: 20240827
